FAERS Safety Report 4703182-7 (Version None)
Quarter: 2005Q2

REPORT INFORMATION
  Report Type: 
  Country: None (occurrence: None)
  Receive Date: 20050629
  Receipt Date: 20050622
  Transmission Date: 20051028
  Serious: Yes (Disabling)
  Sender: FDA-Public Use
  Company Number: 2005UW09441

PATIENT
  Sex: Female

DRUGS (7)
  1. SEROQUEL [Suspect]
     Indication: SLEEP DISORDER
     Route: 048
     Dates: start: 20040101
  2. LAMICTAL [Interacting]
     Indication: BIPOLAR DISORDER
     Route: 048
     Dates: start: 20050201, end: 20050608
  3. LAMICTAL [Interacting]
     Route: 048
     Dates: start: 20050201
  4. THYROXINE [Concomitant]
  5. CALCITRIOL [Concomitant]
  6. NAPROXEN SODIUM [Concomitant]
  7. IBUPROFEN [Concomitant]

REACTIONS (7)
  - ARTHRALGIA [None]
  - ARTHRITIS [None]
  - DRUG INTERACTION [None]
  - JOINT SWELLING [None]
  - MONARTHRITIS [None]
  - MOVEMENT DISORDER [None]
  - PHOTOPHOBIA [None]
